FAERS Safety Report 8274232-9 (Version None)
Quarter: 2012Q2

REPORT INFORMATION
  Report Type: 
  Country: None (occurrence: None)
  Receive Date: 20120411
  Receipt Date: 20120403
  Transmission Date: 20120825
  Serious: Yes (Other)
  Sender: FDA-Public Use
  Company Number: FR-ROCHE-1054201

PATIENT
  Age: 55 Year
  Sex: Female

DRUGS (2)
  1. RIBAVIRIN [Concomitant]
     Indication: HEPATITIS C
  2. PEGASYS [Suspect]
     Indication: HEPATITIS C
     Route: 058

REACTIONS (2)
  - RENAL FAILURE [None]
  - FATIGUE [None]
